FAERS Safety Report 24961458 (Version 2)
Quarter: 2025Q2

REPORT INFORMATION
  Report Type: Spontaneous
  Country: US (occurrence: US)
  Receive Date: 20250212
  Receipt Date: 20250606
  Transmission Date: 20250716
  Serious: No
  Sender: BRISTOL-MYERS SQUIBB COMPANY
  Company Number: US-BRISTOL-MYERS SQUIBB COMPANY-2025-021438

PATIENT
  Age: 75 Year
  Sex: Female

DRUGS (1)
  1. LENALIDOMIDE [Suspect]
     Active Substance: LENALIDOMIDE
     Indication: Plasma cell myeloma
     Route: 048

REACTIONS (6)
  - Nervousness [Not Recovered/Not Resolved]
  - Off label use [Unknown]
  - Blood potassium decreased [Recovered/Resolved]
  - Negative thoughts [Recovered/Resolved]
  - Self-injurious ideation [Recovered/Resolved]
  - Tremor [Recovered/Resolved]
